FAERS Safety Report 4576321-9 (Version None)
Quarter: 2005Q1

REPORT INFORMATION
  Report Type: 
  Country: None (occurrence: None)
  Receive Date: 20050207
  Receipt Date: 20050124
  Transmission Date: 20050727
  Serious: Yes (Life-Threatening, Hospitalization)
  Sender: FDA-Public Use
  Company Number: 2005018506

PATIENT
  Age: 76 Year
  Sex: Female

DRUGS (5)
  1. CELEBREX [Suspect]
     Indication: ILL-DEFINED DISORDER
     Dosage: 200 MG (200 MG, 1 IN 1 D), ORAL
     Route: 048
     Dates: end: 20041201
  2. ACETYLSALICYLIC ACID SRT [Concomitant]
  3. LERCANIDIPINE [Concomitant]
  4. PRAVASTATIN SODIUM [Concomitant]
  5. LORAZEPAM [Concomitant]

REACTIONS (1)
  - HAEMORRHAGIC STROKE [None]
